FAERS Safety Report 4705908-5 (Version None)
Quarter: 2005Q2

REPORT INFORMATION
  Report Type: 
  Country: None (occurrence: None)
  Receive Date: 20050629
  Receipt Date: 20050620
  Transmission Date: 20051028
  Serious: Yes (Hospitalization, Other)
  Sender: FDA-Public Use
  Company Number: 2005090829

PATIENT
  Age: 77 Year
  Sex: Male
  Weight: 73 kg

DRUGS (7)
  1. LINEZOLID SOLUTION, STERILE (LINEZOLID) [Suspect]
     Indication: STAPHYLOCOCCAL INFECTION
     Dosage: 1200 MG (600 MG, 2 IN 1 D)
     Dates: start: 20040104, end: 20050120
  2. LANSOPAZOLE (LANSOPRAZOLE) [Suspect]
     Indication: PROPHYLAXIS
     Dosage: 30- MG (30 MG, 1 IN 1 D), ORAL
     Route: 048
     Dates: start: 20050127, end: 20050201
  3. PANTOPRAZOLE SODIUM [Suspect]
     Indication: PROPHYLAXIS
     Dosage: 40 MG (40 MG, 1 IN 1 D), INTRAVENOUS
     Route: 042
     Dates: start: 20050102, end: 20050127
  4. FLUCLOXACILLIN [Concomitant]
  5. TEICOPLANIN (TEICOPLANIN) [Concomitant]
  6. TAZOCIN (PIPERACILLIN SODIUM, TAZOBACTAM SODIUM) [Concomitant]
  7. AMIODARONE HCL [Concomitant]

REACTIONS (7)
  - ALANINE AMINOTRANSFERASE INCREASED [None]
  - BLOOD ALKALINE PHOSPHATASE INCREASED [None]
  - BLOOD BILIRUBIN INCREASED [None]
  - INTERNATIONAL NORMALISED RATIO INCREASED [None]
  - LIVER FUNCTION TEST ABNORMAL [None]
  - RENAL FAILURE ACUTE [None]
  - STAPHYLOCOCCAL INFECTION [None]
